FAERS Safety Report 17918569 (Version 2)
Quarter: 2020Q3

REPORT INFORMATION
  Report Type: Spontaneous
  Country: MX (occurrence: MX)
  Receive Date: 20200619
  Receipt Date: 20200709
  Transmission Date: 20201103
  Serious: No
  Sender: FDA-Public Use
  Company Number: MX-ELI_LILLY_AND_COMPANY-MX202006007370

PATIENT
  Age: 42 Year
  Sex: Male

DRUGS (1)
  1. BARICITINIB [Suspect]
     Active Substance: BARICITINIB
     Indication: SUSPECTED COVID-19
     Dosage: ONE DAILY TABLET FOR 20 DAYS
     Route: 065

REACTIONS (1)
  - Off label use [Unknown]
